FAERS Safety Report 23884378 (Version 3)
Quarter: 2025Q4

REPORT INFORMATION
  Report Type: Spontaneous
  Country: US (occurrence: US)
  Receive Date: 20240522
  Receipt Date: 20251120
  Transmission Date: 20260117
  Serious: No
  Sender: CATALYST PHARMA
  Company Number: US-CATALYST PHARMACEUTICALS-US-CATA-24-00359

PATIENT
  Sex: Male
  Weight: 61.891 kg

DRUGS (15)
  1. AGAMREE [Suspect]
     Active Substance: VAMOROLONE
     Indication: Duchenne muscular dystrophy
     Dosage: 7.5 ML DAILY
     Route: 048
     Dates: start: 20240410, end: 2025
  2. AGAMREE [Suspect]
     Active Substance: VAMOROLONE
     Dosage: 5 ML PER DAY
     Route: 048
     Dates: start: 2024
  3. AGAMREE [Suspect]
     Active Substance: VAMOROLONE
     Dosage: 7.5 ML DAILY
     Route: 048
     Dates: end: 2025
  4. CARVEDILOL [Concomitant]
     Active Substance: CARVEDILOL
     Indication: Cardiovascular event prophylaxis
     Dosage: 3.125 MG TWICE DAILY
     Route: 065
  5. OMEGA 3 [Concomitant]
     Active Substance: CAPSAICIN
     Indication: Cardiovascular event prophylaxis
     Dosage: 300 MG DAILY
     Route: 065
  6. OMEGA 3 [Concomitant]
     Active Substance: CAPSAICIN
     Dosage: 1000 MG DAILY
     Route: 065
  7. METAMUCIL [Concomitant]
     Active Substance: PLANTAGO SEED
     Indication: Gastrointestinal disorder prophylaxis
     Dosage: TWO CAPSULES EVERY OTHER DAY
     Route: 065
  8. MOMETASONE [Concomitant]
     Active Substance: MOMETASONE
     Indication: Sinus congestion
     Dosage: TWO SPRAYS AS NEEDED
     Route: 045
  9. PERINDOPRIL [Concomitant]
     Active Substance: PERINDOPRIL
     Indication: Cardiovascular event prophylaxis
     Dosage: 4 MG DAILY
     Route: 065
  10. TUMS CHEWABLE [Concomitant]
     Indication: Bone disorder
     Dosage: TWICE DAILY
     Route: 065
  11. TUMS CHEWABLE [Concomitant]
     Indication: Prophylaxis
  12. VITAMIN D3 [Concomitant]
     Active Substance: CHOLECALCIFEROL
     Indication: Bone disorder
     Dosage: 2000 INTERNATIONAL UNITS DAILY
     Route: 065
  13. VITAMIN D3 [Concomitant]
     Active Substance: CHOLECALCIFEROL
     Indication: Prophylaxis
     Dosage: 125 MCG DAILY
     Route: 065
  14. UNKNOWN ANTIFUNGA [Concomitant]
     Indication: Rash
     Dosage: TWICE A DAY
     Route: 061
  15. PROBIOTICS NOS [Concomitant]
     Active Substance: PROBIOTICS NOS
     Indication: Gastrointestinal disorder prophylaxis
     Dosage: ONE DAILY
     Route: 065

REACTIONS (3)
  - Rash [Recovering/Resolving]
  - Middle ear effusion [Recovering/Resolving]
  - Skin disorder [Recovering/Resolving]

NARRATIVE: CASE EVENT DATE: 20240101
